FAERS Safety Report 15800951 (Version 2)
Quarter: 2019Q2

REPORT INFORMATION
  Report Type: Spontaneous
  Country: BE (occurrence: BE)
  Receive Date: 20190109
  Receipt Date: 20190402
  Transmission Date: 20190711
  Serious: Yes (Other)
  Sender: FDA-Public Use
  Company Number: BE-009507513-1901BEL001666

PATIENT
  Age: 87 Year
  Sex: Male
  Weight: 79 kg

DRUGS (18)
  1. COMBODART [Suspect]
     Active Substance: DUTASTERIDE\TAMSULOSIN
     Indication: BENIGN PROSTATIC HYPERPLASIA
     Dosage: 0.5 /0.4 MG, 1X/DAY
     Route: 048
     Dates: start: 20110316
  2. CORUNO [Concomitant]
     Active Substance: MOLSIDOMINE
     Dosage: 16 MG, UNK
     Dates: start: 20101222
  3. SIMVASTATIN. [Suspect]
     Active Substance: SIMVASTATIN
     Indication: HYPERCHOLESTEROLAEMIA
     Dosage: 20 MG, 1X/DAY
     Route: 048
     Dates: start: 2004
  4. DAFLON (DIOSMIN (+) HESPERIDIN) [Suspect]
     Active Substance: DIOSMIN\HESPERIDIN
     Dosage: 500 (UNIT NOT PROVIDED) 1X/DAY
     Route: 048
     Dates: start: 19911005
  5. TRADONAL [Concomitant]
     Active Substance: TRAMADOL HYDROCHLORIDE
     Dosage: 50 MG, AS NEEDED
  6. OMEPRAZOLE. [Concomitant]
     Active Substance: OMEPRAZOLE
     Dosage: 20 MG, UNK
     Dates: start: 20100127
  7. TEMESTA [Concomitant]
     Dosage: 2.5 MG, UNK
     Dates: start: 20140705
  8. LOORTAN 50 MG, COMPRIM?S PELLICUL?S [Suspect]
     Active Substance: LOSARTAN POTASSIUM
     Indication: HYPERTENSION
     Dosage: 50 MG, 1X/DAY
     Route: 048
     Dates: start: 2002
  9. ALDACTAZINE [Suspect]
     Active Substance: ALTHIAZIDE\SPIRONOLACTONE
     Indication: HYPERTENSION
     Dosage: 25/15 MG, 2X/DAY
     Route: 048
     Dates: start: 2005
  10. L-THYROXIN [Suspect]
     Active Substance: LEVOTHYROXINE SODIUM
     Indication: THYROID DISORDER
     Dosage: 150 UG, 1X/DAY
     Route: 048
     Dates: start: 2004
  11. DAFALGAN [Concomitant]
     Active Substance: ACETAMINOPHEN
     Dosage: 1 G, AS NEEDED
  12. NEBIVOLOL. [Concomitant]
     Active Substance: NEBIVOLOL
     Dosage: 5 MG, UNK
     Dates: start: 2018
  13. CALCIUM (UNSPECIFIED) [Concomitant]
     Active Substance: CALCIUM
     Dosage: 1 G, UNK
     Dates: start: 2015
  14. BRUFEN [Concomitant]
     Active Substance: IBUPROFEN
     Dosage: 600 MG, AS NEEDED
  15. ZANIDIP [Suspect]
     Active Substance: LERCANIDIPINE HYDROCHLORIDE
     Indication: HYPERTENSION
     Dosage: 10 MG, 1X/DAY
     Route: 048
     Dates: start: 20180910
  16. OXYCODONE HYDROCHLORIDE. [Concomitant]
     Active Substance: OXYCODONE HYDROCHLORIDE
     Dosage: 10 MG, AS NEEDED
  17. ASAFLOW [Concomitant]
     Active Substance: ASPIRIN
     Dosage: 80 MG, UNK
     Dates: start: 20110625
  18. LYRICA [Concomitant]
     Active Substance: PREGABALIN
     Dosage: 75 MG, UNK
     Dates: start: 2019

REACTIONS (1)
  - Basal cell carcinoma [Unknown]
